FAERS Safety Report 15110751 (Version 1)
Quarter: 2018Q3

REPORT INFORMATION
  Report Type: Spontaneous
  Country: IT (occurrence: IT)
  Receive Date: 20180705
  Receipt Date: 20180705
  Transmission Date: 20181010
  Serious: Yes (Hospitalization)
  Sender: FDA-Public Use
  Company Number: IT-TEVA-778193ACC

PATIENT
  Age: 43 Year
  Sex: Female

DRUGS (3)
  1. AZILECT [Suspect]
     Active Substance: RASAGILINE MESYLATE
     Indication: PARKINSON^S DISEASE
     Dosage: 1 DOSAGE FORMS DAILY;
     Route: 048
     Dates: start: 20150401, end: 20170523
  2. MADOPAR ?200 MG + 50 MG COMPRESSE DIVISIBILI ? ROCHE S.P.A. [Suspect]
     Active Substance: BENSERAZIDE HYDROCHLORIDE\LEVODOPA
     Indication: PARKINSON^S DISEASE
     Dosage: .75 DOSAGE FORMS DAILY;
     Route: 048
     Dates: start: 20150401, end: 20170523
  3. MIRAPEXIN ?0,26 MG COMPRESSA A RILASCIO PROLUNGATO [Suspect]
     Active Substance: PRAMIPEXOLE DIHYDROCHLORIDE
     Indication: PARKINSON^S DISEASE
     Dosage: 1 DOSAGE FORMS DAILY;
     Route: 048
     Dates: start: 20150401, end: 20170523

REACTIONS (4)
  - Jealous delusion [Recovering/Resolving]
  - Impulsive behaviour [Recovering/Resolving]
  - Compulsive hoarding [Recovering/Resolving]
  - Hypersexuality [Recovering/Resolving]

NARRATIVE: CASE EVENT DATE: 20150601
